FAERS Safety Report 9128802 (Version 1)
Quarter: 2013Q1

REPORT INFORMATION
  Report Type: Spontaneous
  Country: US (occurrence: US)
  Receive Date: 20130125
  Receipt Date: 20130125
  Transmission Date: 20140127
  Serious: No
  Sender: FDA-Public Use
  Company Number: US-TEVA-382442USA

PATIENT
  Age: 53 Year
  Sex: Male
  Weight: 93.07 kg

DRUGS (5)
  1. NUVIGIL [Suspect]
     Indication: NARCOLEPSY
     Dosage: 250 MILLIGRAM DAILY; 2 MONTHS
     Route: 048
     Dates: start: 20121030, end: 20130112
  2. NUVIGIL [Suspect]
     Dosage: 312.5 TO 375 MG DAILY
  3. LEVOTHYROXINE [Concomitant]
     Indication: HYPOTHYROIDISM
     Dosage: 125 MICROGRAM DAILY;
     Route: 048
  4. HYDROCODONE [Concomitant]
     Indication: PAIN
     Dosage: 5/500 PRN
     Route: 048
  5. FLEXERIL [Concomitant]
     Indication: MUSCLE SPASMS
     Dosage: 10-20 MG 1 TO 2 TIIMES DAILY PRN
     Route: 048

REACTIONS (6)
  - Confusional state [Recovered/Resolved]
  - Hallucination [Recovered/Resolved]
  - Personality change [Recovered/Resolved]
  - Insomnia [Recovered/Resolved]
  - Depression [Recovered/Resolved]
  - Drug ineffective [Recovered/Resolved]
